FAERS Safety Report 5469442-X (Version None)
Quarter: 2007Q3

REPORT INFORMATION
  Report Type: 
  Country: None (occurrence: None)
  Receive Date: 20070927
  Receipt Date: 20070918
  Transmission Date: 20080115
  Serious: Yes (Hospitalization)
  Sender: FDA-Public Use
  Company Number: DE-JNJFOC-20070903509

PATIENT
  Age: 78 Year
  Sex: Male

DRUGS (9)
  1. LEVOFLOXACIN [Suspect]
     Indication: PROPHYLAXIS
     Route: 048
  2. DOCETAXEL [Suspect]
     Indication: NEOPLASM MALIGNANT
     Route: 042
  3. CARBOPLATIN [Suspect]
     Indication: NEOPLASM MALIGNANT
     Route: 042
  4. NOVAMINSULFAT [Concomitant]
     Indication: PAIN
     Route: 048
  5. METOCLOPRAMIDE [Concomitant]
     Indication: VOMITING
     Route: 048
  6. MACROGOL [Concomitant]
     Indication: CONSTIPATION
     Route: 048
  7. TRAMADOL HCL [Concomitant]
     Indication: PAIN
     Route: 048
  8. PARACODEIN [Concomitant]
     Indication: COUGH
     Route: 048
  9. NOVOBON [Concomitant]
     Indication: VOMITING
     Route: 042

REACTIONS (1)
  - GASTRITIS [None]
